FAERS Safety Report 8407096-0 (Version None)
Quarter: 2012Q2

REPORT INFORMATION
  Report Type: 
  Country: None (occurrence: None)
  Receive Date: 20120323
  Receipt Date: 20111201
  Transmission Date: 20120825
  Serious: Yes (Other)
  Sender: FDA-Public Use
  Company Number: 163-21880-11052378

PATIENT
  Age: 85 Year
  Sex: Female
  Weight: 49.8957 kg

DRUGS (2)
  1. REVLIMID [Suspect]
     Indication: 5Q MINUS SYNDROME
     Dosage: 5  MG, 1 IN 1 D, PO
     Route: 048
     Dates: start: 20100706, end: 20110425
  2. ARANESP [Concomitant]

REACTIONS (2)
  - WHITE BLOOD CELL COUNT DECREASED [None]
  - NEUTROPHIL COUNT DECREASED [None]
